FAERS Safety Report 16462561 (Version 6)
Quarter: 2021Q1

REPORT INFORMATION
  Report Type: Report from Study
  Country: NL (occurrence: NL)
  Receive Date: 20190621
  Receipt Date: 20210120
  Transmission Date: 20210419
  Serious: Yes (Hospitalization, Other)
  Sender: FDA-Public Use
  Company Number: NL-AMGEN-NLDSL2019096511

PATIENT
  Age: 69 Year
  Sex: Male

DRUGS (8)
  1. CALCIUM CARBONATE W/COLECALCIFEROL [Concomitant]
     Active Substance: CALCIUM CARBONATE\CHOLECALCIFEROL
     Dosage: 1000 MILLIGRAM, QD,2.5G/880IE
  2. XGEVA [Suspect]
     Active Substance: DENOSUMAB
     Dosage: UNK
     Route: 065
  3. XGEVA [Suspect]
     Active Substance: DENOSUMAB
     Dosage: UNK
     Route: 065
  4. FENTANYL. [Concomitant]
     Active Substance: FENTANYL
     Dosage: 12UG/HR (GENERIC+DUROGESIC) 1PL PER 3 DAYS
  5. LISINOPRIL. [Concomitant]
     Active Substance: LISINOPRIL
     Dosage: 10 MILLIGRAM, QD
  6. SIMVASTATINE [Concomitant]
     Active Substance: SIMVASTATIN
     Dosage: 20 MILLIGRAM, QD
  7. XGEVA [Suspect]
     Active Substance: DENOSUMAB
     Indication: PROPHYLAXIS
     Dosage: 120 MILLIGRAM/1,7ML, Q4WK
     Route: 065
     Dates: start: 2015
  8. PREGABALINE [Concomitant]
     Active Substance: PREGABALIN
     Dosage: 150 MILLIGRAM, QD

REACTIONS (7)
  - Injury [Unknown]
  - Abdominal pain upper [Recovering/Resolving]
  - Bacteraemia [Unknown]
  - Fatigue [Unknown]
  - Biliary colic [Recovered/Resolved]
  - Hypophagia [Unknown]
  - Weight decreased [Unknown]

NARRATIVE: CASE EVENT DATE: 20191218
